FAERS Safety Report 4301504-2 (Version None)
Quarter: 2004Q1

REPORT INFORMATION
  Report Type: 
  Country: None (occurrence: None)
  Receive Date: 20040219
  Receipt Date: 20040205
  Transmission Date: 20041129
  Serious: Yes (Hospitalization)
  Sender: FDA-Public Use
  Company Number: S03-USA-02425-01

PATIENT
  Age: 52 Year
  Sex: Male

DRUGS (6)
  1. LEXAPRO [Suspect]
     Indication: ANXIETY
     Dosage: 10 MG QAM PO
     Route: 048
     Dates: start: 20020901, end: 20030504
  2. LEXAPRO [Suspect]
     Indication: DEPRESSION
     Dosage: 10 MG QAM PO
     Route: 048
     Dates: start: 20020901, end: 20030504
  3. WELLBUTRIN SR [Suspect]
     Indication: DEPRESSION
     Dosage: 150 MG BID
     Dates: start: 20020101, end: 20030504
  4. WELLBUTRIN [Suspect]
     Indication: DEPRESSION
     Dosage: 100 MG QD
     Dates: start: 20020101, end: 20020101
  5. DILANTIN [Concomitant]
  6. KEPPRA [Concomitant]

REACTIONS (4)
  - COMA [None]
  - GRAND MAL CONVULSION [None]
  - LIBIDO DECREASED [None]
  - TENDON INJURY [None]
